FAERS Safety Report 13125035 (Version 1)
Quarter: 2017Q1

REPORT INFORMATION
  Report Type: Spontaneous
  Country: US (occurrence: US)
  Receive Date: 20170118
  Receipt Date: 20170118
  Transmission Date: 20170428
  Serious: No
  Sender: FDA-Public Use
  Company Number: US-009507513-1701USA007309

PATIENT
  Sex: Female

DRUGS (2)
  1. NEXPLANON [Suspect]
     Active Substance: ETONOGESTREL
     Dosage: UNK
     Route: 059
     Dates: start: 201501
  2. NEXPLANON [Suspect]
     Active Substance: ETONOGESTREL
     Indication: CONTRACEPTION
     Dosage: UNK
     Route: 059
     Dates: start: 201203, end: 201501

REACTIONS (8)
  - Vomiting [Unknown]
  - Headache [Unknown]
  - Weight decreased [Unknown]
  - Nausea [Unknown]
  - Adverse event [Unknown]
  - Functional gastrointestinal disorder [Unknown]
  - Back pain [Unknown]
  - Urinary tract infection [Unknown]
